FAERS Safety Report 24856533 (Version 2)
Quarter: 2025Q1

REPORT INFORMATION
  Report Type: Spontaneous
  Country: EG (occurrence: EG)
  Receive Date: 20250117
  Receipt Date: 20250205
  Transmission Date: 20250409
  Serious: Yes (Death, Hospitalization)
  Sender: MYLAN
  Company Number: EG-MYLANLABS-2025M1004406

PATIENT
  Age: 66 Year
  Sex: Male
  Weight: 80 kg

DRUGS (3)
  1. NORVASC [Suspect]
     Active Substance: AMLODIPINE BESYLATE
     Indication: Hypertension
     Route: 048
     Dates: start: 20241222
  2. ALDOMET [Suspect]
     Active Substance: METHYLDOPA
     Indication: Hypertension
     Route: 048
     Dates: start: 20241222
  3. CARVEDILOL [Concomitant]
     Active Substance: CARVEDILOL
     Indication: Hypertension
     Route: 048
     Dates: start: 20241222

REACTIONS (2)
  - Blood pressure decreased [Fatal]
  - Hypertension [Unknown]

NARRATIVE: CASE EVENT DATE: 20241222
